FAERS Safety Report 5839431-1 (Version None)
Quarter: 2008Q3

REPORT INFORMATION
  Report Type: 
  Country: None (occurrence: None)
  Receive Date: 20080807
  Receipt Date: 20080722
  Transmission Date: 20090109
  Serious: Yes (Other)
  Sender: FDA-Public Use
  Company Number: 2008S1012828

PATIENT
  Age: 53 Year
  Sex: Female

DRUGS (2)
  1. LEVOTHYROXINE SODIUM [Suspect]
     Indication: THYROID CANCER
     Dosage: 125 UG; DAILY, 125 UG; DAILY
  2. RADIOACTIVE IODINE SOLUTION (SODIUM IODIDE (131 I)) [Concomitant]

REACTIONS (1)
  - HYPERTHYROIDISM [None]
